FAERS Safety Report 7981557-0 (Version None)
Quarter: 2011Q4

REPORT INFORMATION
  Report Type: 
  Country: None (occurrence: None)
  Receive Date: 20111215
  Receipt Date: 20111212
  Transmission Date: 20120403
  Serious: Yes (Other)
  Sender: FDA-Public Use
  Company Number: IE-PFIZER INC-2011281770

PATIENT
  Age: 62 Year
  Sex: Female

DRUGS (3)
  1. CALCIUM CARBONATE [Suspect]
     Indication: SUPPLEMENTATION THERAPY
     Dosage: 500 MG, 2X/DAY
     Route: 048
     Dates: start: 20030101, end: 20111112
  2. LIPITOR [Suspect]
     Indication: URTICARIA
     Dosage: 10 MG, NIGHTLY
     Route: 048
     Dates: start: 20060101, end: 20111112
  3. TEGRETOL [Concomitant]
     Indication: EPILEPSY
     Dosage: 200MG OR 300MG MORN + NIGHT
     Route: 048
     Dates: start: 19780101

REACTIONS (4)
  - URTICARIA [None]
  - SWELLING [None]
  - MUSCULOSKELETAL PAIN [None]
  - DYSPHONIA [None]
